FAERS Safety Report 11145540 (Version 2)
Quarter: 2015Q2

REPORT INFORMATION
  Report Type: Report from Study
  Country: US (occurrence: US)
  Receive Date: 20150526
  Receipt Date: 20150602
  Transmission Date: 20150821
  Serious: Yes (Hospitalization)
  Sender: FDA-Public Use
  Company Number: US-MALLINCKRODT-T201502603

PATIENT
  Age: 46 Year
  Sex: Female
  Weight: 148 kg

DRUGS (13)
  1. REPOSITORY CORTICOTROPIN INJECTION [Suspect]
     Active Substance: CORTICOTROPIN
     Indication: PROTEINURIA
     Dosage: 20 UNITS, TWICE WEEKLY
     Route: 058
     Dates: start: 20150201
  2. REPOSITORY CORTICOTROPIN INJECTION [Suspect]
     Active Substance: CORTICOTROPIN
     Dosage: 80 UNITS, TWICE WEEKLY
     Route: 058
  3. BUMEX [Concomitant]
     Active Substance: BUMETANIDE
  4. PROTONIX [Concomitant]
     Active Substance: PANTOPRAZOLE SODIUM
  5. LASIX [Concomitant]
     Active Substance: FUROSEMIDE
  6. NORVASC [Concomitant]
     Active Substance: AMLODIPINE BESYLATE
  7. LISINOPRIL. [Concomitant]
     Active Substance: LISINOPRIL
  8. REPOSITORY CORTICOTROPIN INJECTION [Suspect]
     Active Substance: CORTICOTROPIN
     Indication: SYSTEMIC LUPUS ERYTHEMATOSUS
     Dosage: 40 UNITS, TWICE WEEKLY
     Route: 058
  9. TOPAMAX [Concomitant]
     Active Substance: TOPIRAMATE
  10. IMURAN [Concomitant]
     Active Substance: AZATHIOPRINE
  11. VITAMIN D [Concomitant]
     Active Substance: CHOLECALCIFEROL
  12. K-DUR [Concomitant]
     Active Substance: POTASSIUM CHLORIDE
  13. METOLAZONE. [Concomitant]
     Active Substance: METOLAZONE

REACTIONS (2)
  - Pulmonary embolism [Recovered/Resolved]
  - Incorrect dose administered [Recovered/Resolved]

NARRATIVE: CASE EVENT DATE: 201504
